FAERS Safety Report 21934294 (Version 2)
Quarter: 2023Q1

REPORT INFORMATION
  Report Type: Spontaneous
  Country: CA (occurrence: CA)
  Receive Date: 20230201
  Receipt Date: 20230317
  Transmission Date: 20230418
  Serious: Yes (Other)
  Sender: FDA-Public Use
  Company Number: CA-PFIZER INC-202300039803

PATIENT
  Age: 26 Year

DRUGS (1)
  1. METHOTREXATE SODIUM [Suspect]
     Active Substance: METHOTREXATE SODIUM
     Indication: Arthritis
     Dosage: 20 MG, WEEKLY
     Route: 058
     Dates: start: 202106

REACTIONS (3)
  - C-reactive protein increased [Unknown]
  - Drug ineffective [Unknown]
  - Off label use [Unknown]
